FAERS Safety Report 8791495 (Version 1)
Quarter: 2012Q4

REPORT INFORMATION
  Report Type: Spontaneous
  Country: US (occurrence: None)
  Receive Date: 20120912
  Receipt Date: 20120912
  Transmission Date: 20130627
  Serious: Yes (Hospitalization)
  Sender: FDA-Public Use
  Company Number: US-1194039

PATIENT
  Age: 34 Year
  Sex: Male

DRUGS (1)
  1. ATROPINE [Suspect]
     Route: 048

REACTIONS (16)
  - Mental disorder [None]
  - Aggression [None]
  - Sedation [None]
  - Agitation [None]
  - Sinus tachycardia [None]
  - Overdose [None]
  - Syncope [None]
  - Pupil fixed [None]
  - Blood pressure increased [None]
  - Mucosal dryness [None]
  - Flushing [None]
  - Incorrect route of drug administration [None]
  - Mental status changes [None]
  - Oxygen saturation decreased [None]
  - Self injurious behaviour [None]
  - Drug level increased [None]
